FAERS Safety Report 4470898-X (Version None)
Quarter: 2004Q4

REPORT INFORMATION
  Report Type: 
  Country: None (occurrence: None)
  Receive Date: 20041011
  Receipt Date: 20040818
  Transmission Date: 20050328
  Serious: Yes (Life-Threatening)
  Sender: FDA-Public Use
  Company Number: JP-BRISTOL-MYERS SQUIBB COMPANY-12676383

PATIENT
  Age: 77 Year
  Sex: Female

DRUGS (5)
  1. MAXIPIME [Suspect]
     Indication: PERITONITIS BACTERIAL
     Route: 041
     Dates: start: 20040806, end: 20040807
  2. LIVACT [Suspect]
     Indication: HYPOALBUMINAEMIA
     Route: 048
     Dates: start: 20040720, end: 20040810
  3. TAKEPRON [Concomitant]
     Dosage: ONCE DAILY
     Route: 048
     Dates: start: 20040515
  4. SELBEX [Concomitant]
     Route: 048
     Dates: start: 20040515
  5. FUROSEMIDE [Concomitant]
     Route: 048
     Dates: start: 20031018

REACTIONS (1)
  - INTERSTITIAL LUNG DISEASE [None]
